FAERS Safety Report 17337557 (Version 1)
Quarter: 2020Q1

REPORT INFORMATION
  Report Type: Spontaneous
  Country: US (occurrence: US)
  Receive Date: 20200129
  Receipt Date: 20200129
  Transmission Date: 20200409
  Serious: Yes (Hospitalization, Other)
  Sender: FDA-Public Use
  Company Number: US-ACCORD-171008

PATIENT
  Age: 39 Year
  Sex: Female

DRUGS (5)
  1. DOXORUBICIN [Suspect]
     Active Substance: DOXORUBICIN
     Indication: BREAST IMPLANT-ASSOCIATED ANAPLASTIC LARGE CELL LYMPHOMA
  2. ETOPOSIDE. [Suspect]
     Active Substance: ETOPOSIDE
     Indication: BREAST IMPLANT-ASSOCIATED ANAPLASTIC LARGE CELL LYMPHOMA
  3. CYCLOPHOSPHAMIDE/CYCLOPHOSPHAMIDE MONOHYDRATE [Suspect]
     Active Substance: CYCLOPHOSPHAMIDE
     Indication: BREAST IMPLANT-ASSOCIATED ANAPLASTIC LARGE CELL LYMPHOMA
  4. PREDNISOLONE. [Suspect]
     Active Substance: PREDNISOLONE
     Indication: BREAST IMPLANT-ASSOCIATED ANAPLASTIC LARGE CELL LYMPHOMA
  5. ONCOVIN [Suspect]
     Active Substance: VINCRISTINE SULFATE
     Indication: BREAST IMPLANT-ASSOCIATED ANAPLASTIC LARGE CELL LYMPHOMA

REACTIONS (8)
  - Off label use [Unknown]
  - Pulmonary embolism [Unknown]
  - Nausea [Unknown]
  - Pancytopenia [Unknown]
  - Ejection fraction decreased [Unknown]
  - Vulval cellulitis [Unknown]
  - Neuropathy peripheral [Unknown]
  - Genital herpes simplex [Unknown]
